FAERS Safety Report 6776147-1 (Version None)
Quarter: 2010Q2

REPORT INFORMATION
  Report Type: 
  Country: None (occurrence: None)
  Receive Date: 20100615
  Receipt Date: 20100601
  Transmission Date: 20101027
  Serious: Yes (Other)
  Sender: FDA-Public Use
  Company Number: ACO_01012_2010

PATIENT
  Sex: Female
  Weight: 71.6683 kg

DRUGS (5)
  1. AMPYRA [Suspect]
     Indication: MULTIPLE SCLEROSIS
     Dosage: 10 MG BID ORAL
     Route: 048
     Dates: start: 20100401
  2. NEURONTIN [Concomitant]
  3. BACLOFEN [Concomitant]
  4. CYMBALTA [Concomitant]
  5. BETASERON [Concomitant]

REACTIONS (3)
  - BLINDNESS UNILATERAL [None]
  - MUSCULAR WEAKNESS [None]
  - OPTIC NEURITIS [None]
